FAERS Safety Report 9019478 (Version 2)
Quarter: 2013Q1

REPORT INFORMATION
  Report Type: Spontaneous
  Country: US (occurrence: US)
  Receive Date: 20130118
  Receipt Date: 20130310
  Transmission Date: 20140127
  Serious: No
  Sender: FDA-Public Use
  Company Number: US-ASTRAZENECA-2013SE01428

PATIENT
  Age: 84 Year
  Sex: Female
  Weight: 65.8 kg

DRUGS (5)
  1. SYMBICORT [Suspect]
     Indication: CHRONIC OBSTRUCTIVE PULMONARY DISEASE
     Dosage: 160/4.5  TWO PUFFS TWO TIMES A DAY
     Route: 055
     Dates: start: 2010, end: 201212
  2. GENERIC PROTONIX [Concomitant]
     Indication: OESOPHAGEAL CARCINOMA
     Route: 048
  3. GENERIC CARTIA [Concomitant]
     Indication: ARTERIAL OCCLUSIVE DISEASE
     Route: 048
  4. SPIRIVA [Concomitant]
     Indication: CHRONIC OBSTRUCTIVE PULMONARY DISEASE
  5. ALBUTEROL [Concomitant]
     Indication: CHRONIC OBSTRUCTIVE PULMONARY DISEASE

REACTIONS (2)
  - Dyspnoea [Unknown]
  - Drug dose omission [Unknown]
